FAERS Safety Report 25049353 (Version 1)
Quarter: 2025Q1

REPORT INFORMATION
  Report Type: Spontaneous
  Country: US (occurrence: US)
  Receive Date: 20250307
  Receipt Date: 20250307
  Transmission Date: 20250409
  Serious: Yes (Hospitalization, Other)
  Sender: Unknown Manufacturer
  Company Number: US-862174955-ML2025-01117

PATIENT
  Age: 50 Year
  Sex: Male

DRUGS (1)
  1. TRANEXAMIC ACID [Suspect]
     Active Substance: TRANEXAMIC ACID
     Indication: Product used for unknown indication
     Route: 037

REACTIONS (5)
  - Toxicity to various agents [Unknown]
  - Status epilepticus [Recovered/Resolved with Sequelae]
  - Hypotension [Unknown]
  - Incorrect route of product administration [Unknown]
  - Wrong product administered [Unknown]
